FAERS Safety Report 16208581 (Version 2)
Quarter: 2019Q3

REPORT INFORMATION
  Report Type: Spontaneous
  Country: US (occurrence: US)
  Receive Date: 20190417
  Receipt Date: 20190709
  Transmission Date: 20191004
  Serious: Yes (Hospitalization, Other)
  Sender: FDA-Public Use
  Company Number: US-PFIZER INC-2018506514

PATIENT
  Age: 69 Year
  Sex: Male
  Weight: 117 kg

DRUGS (18)
  1. SPIRONOLACTONE. [Concomitant]
     Active Substance: SPIRONOLACTONE
     Dosage: 25 MG, DAILY (1 TABLET DAILY, MORNING)
     Dates: start: 201905
  2. XARELTO [Concomitant]
     Active Substance: RIVAROXABAN
     Dosage: 20 MG, DAILY (1 TABLET DAILY, MORNINGW/FOOD)
     Dates: start: 201810
  3. TOPIRAMATE. [Concomitant]
     Active Substance: TOPIRAMATE
     Dosage: 50 MG, DAILY (1 TABLET DAILY, NIGHT)
     Dates: start: 201503
  4. TYLENOL 8HR [Concomitant]
     Active Substance: ACETAMINOPHEN
     Indication: ARTHRITIS
     Dosage: 650 MG, DAILY (2 TO 6 TABLET DAILY, MORNING/EVENING/NIGHT)
  5. PLAVIX [Concomitant]
     Active Substance: CLOPIDOGREL BISULFATE
     Dosage: 75 MG, DAILY (1 TABLET DAILY, EVENING)
     Dates: start: 201301
  6. LYRICA [Suspect]
     Active Substance: PREGABALIN
     Indication: NERVE INJURY
     Dosage: 150 MG, 3X/DAY(MORNING/EVENING/NIGHT)
     Route: 048
     Dates: start: 200701
  7. LYRICA [Suspect]
     Active Substance: PREGABALIN
     Indication: PERIPHERAL ARTERY ANEURYSM
  8. LIDODERM [Concomitant]
     Active Substance: LIDOCAINE
     Dosage: 2 DF, 2X/DAY(2 PATCHES IN 12 HR, NIGHT)
     Dates: start: 200703
  9. LYRICA [Suspect]
     Active Substance: PREGABALIN
     Indication: NEURALGIA
  10. FISH OIL [Concomitant]
     Active Substance: FISH OIL
     Dosage: 4000 MG, DAILY (4 TABLETS DAILY, MORNING/EVENING)
     Dates: start: 200601
  11. NEXIUM I.V. [Concomitant]
     Active Substance: ESOMEPRAZOLE SODIUM
     Dosage: 80 MG, DAILY (2 TABLET DAILY, MORNING/EVENING)
     Dates: start: 200702
  12. METOPROLOL SUCCINATE. [Concomitant]
     Active Substance: METOPROLOL SUCCINATE
     Dosage: 50 MG, DAILY (1TABLET DAILY,EVENING)
     Dates: start: 199801
  13. COQ10 [ASCORBIC ACID;BETACAROTENE;CUPRIC OXIDE;MANGANESE SULFATE;SELEN [Concomitant]
     Dosage: 200 MG, UNK (1EACH,EVENING)
     Dates: start: 201306
  14. MELOXICAM. [Concomitant]
     Active Substance: MELOXICAM
     Dosage: 15 MG, DAILY (1 TABLET DAILY, MORNINGW/FOOD)
     Dates: start: 201810
  15. LOSARTAN. [Concomitant]
     Active Substance: LOSARTAN
     Dosage: 100 MG, DAILY(1TABLET DAILY,MORNING)
     Dates: start: 201404
  16. AMLODIPINE BESYLATE. [Concomitant]
     Active Substance: AMLODIPINE BESYLATE
     Dosage: 5 MG, DAILY  (1TABLET DAILY,EVENING)
     Dates: start: 201505
  17. HYDRALAZINE [Concomitant]
     Active Substance: HYDRALAZINE HYDROCHLORIDE
     Dosage: 50 MG, DAILY (2 TABLET DAILY, MORNING/EVENING)
     Dates: start: 201905
  18. XYZAL ALLERGY 24HR [Concomitant]
     Active Substance: LEVOCETIRIZINE DIHYDROCHLORIDE
     Dosage: 5 MG, DAILY (1 TABLET DAILY, EVENING)
     Dates: start: 201905

REACTIONS (1)
  - Atrial fibrillation [Recovered/Resolved]

NARRATIVE: CASE EVENT DATE: 20181008
